FAERS Safety Report 15281905 (Version 1)
Quarter: 2018Q3

REPORT INFORMATION
  Report Type: Spontaneous
  Country: US (occurrence: US)
  Receive Date: 20180815
  Receipt Date: 20180815
  Transmission Date: 20181010
  Serious: No
  Sender: FDA-Public Use
  Company Number: US-AMNEAL PHARMACEUTICALS-2018AMN00320

PATIENT
  Sex: Female

DRUGS (1)
  1. ACYCLOVIR. [Suspect]
     Active Substance: ACYCLOVIR
     Dosage: UNK, 8X/DAY

REACTIONS (2)
  - Drug ineffective [Unknown]
  - Medication residue present [Unknown]
